FAERS Safety Report 8854488 (Version 1)
Quarter: 2012Q4

REPORT INFORMATION
  Report Type: 
  Country: US (occurrence: US)
  Receive Date: 20121023
  Receipt Date: 20121023
  Transmission Date: 20130627
  Serious: Yes (Death, Hospitalization, Other)
  Sender: FDA-Public Use
  Company Number: US-009507513-2011SP014807

PATIENT

DRUGS (17)
  1. NUVARING [Suspect]
     Indication: CONTRACEPTION
     Dates: start: 20080618, end: 20090410
  2. SINGULAIR [Concomitant]
  3. PRILOSEC [Concomitant]
  4. SOMA [Concomitant]
  5. CLARITIN [Concomitant]
  6. NASACORT [Concomitant]
  7. URECHOLINE [Concomitant]
  8. XOPENEX [Concomitant]
  9. BACLOFEN [Concomitant]
  10. ATIVAN [Concomitant]
  11. COGENTIN [Concomitant]
  12. ZYPREXA [Concomitant]
  13. DARVOCET-N [Concomitant]
  14. RESTORIL (TEMAZEPAM) [Concomitant]
  15. EFFEXOR [Concomitant]
  16. BACTRIM [Concomitant]
  17. LYRICA [Concomitant]

REACTIONS (14)
  - Hypertensive heart disease [Recovered/Resolved]
  - Pulmonary embolism [Fatal]
  - Pulmonary infarction [Fatal]
  - Deep vein thrombosis [Fatal]
  - Bipolar disorder [Unknown]
  - Musculoskeletal pain [Unknown]
  - Breast tenderness [Unknown]
  - Abdominal pain lower [Unknown]
  - Pain [Unknown]
  - Drug dependence [Unknown]
  - Substance abuse [Unknown]
  - Intentional overdose [Unknown]
  - Paranoia [Unknown]
  - Suicide attempt [Unknown]
